FAERS Safety Report 6647645-6 (Version None)
Quarter: 2010Q1

REPORT INFORMATION
  Report Type: 
  Country: None (occurrence: None)
  Receive Date: 20100323
  Receipt Date: 20100323
  Transmission Date: 20100710
  Serious: Yes (Hospitalization)
  Sender: FDA-Public Use
  Company Number: None

PATIENT
  Sex: Male
  Weight: 98.88 kg

DRUGS (2)
  1. CAMPATH [Suspect]
     Dosage: RENAL TRANSPLANT
  2. CAMPATH [Suspect]

REACTIONS (5)
  - IMPAIRED HEALING [None]
  - JOINT SWELLING [None]
  - JOINT WARMTH [None]
  - PAIN IN EXTREMITY [None]
  - SKIN ULCER [None]
